FAERS Safety Report 24439559 (Version 1)
Quarter: 2024Q4

REPORT INFORMATION
  Report Type: Spontaneous
  Country: US (occurrence: None)
  Receive Date: 20241015
  Receipt Date: 20241015
  Transmission Date: 20250115
  Serious: Yes (Other)
  Sender: Public
  Company Number: None

PATIENT
  Age: 61 Year
  Sex: Female
  Weight: 68 kg

DRUGS (1)
  1. BIVIGAM [Suspect]
     Active Substance: HUMAN IMMUNOGLOBULIN G
     Indication: Immunodeficiency
     Dosage: OTHER FREQUENCY : EVERY 3 TO 5 WEEKS;?
     Route: 042
     Dates: start: 20241009, end: 20241009

REACTIONS (5)
  - Cough [None]
  - Lung disorder [None]
  - Swelling face [None]
  - Erythema [None]
  - Lethargy [None]

NARRATIVE: CASE EVENT DATE: 20241010
